FAERS Safety Report 8920349 (Version 2)
Quarter: 2012Q4

REPORT INFORMATION
  Report Type: 
  Country: US (occurrence: US)
  Receive Date: 20121121
  Receipt Date: 20121227
  Transmission Date: 20130627
  Serious: No
  Sender: FDA-Public Use
  Company Number: US-PFIZER INC-2012288046

PATIENT
  Age: 63 Year
  Sex: Female
  Weight: 66.21 kg

DRUGS (4)
  1. XALATAN [Suspect]
     Indication: GLAUCOMA
     Dosage: 1 drop each eye at night daily
     Route: 047
     Dates: start: 201206
  2. XALATAN [Suspect]
     Indication: CATARACT
  3. COSOPT [Concomitant]
     Indication: GLAUCOMA
     Dosage: one drop in both eyes at night daily
     Route: 047
     Dates: start: 2009
  4. COSOPT [Concomitant]
     Indication: CATARACT

REACTIONS (2)
  - Tongue dry [Not Recovered/Not Resolved]
  - Tongue coated [Not Recovered/Not Resolved]
